FAERS Safety Report 17289702 (Version 1)
Quarter: 2020Q1

REPORT INFORMATION
  Report Type: Report from Study
  Country: US (occurrence: NL)
  Receive Date: 20200120
  Receipt Date: 20200120
  Transmission Date: 20200409
  Serious: Yes (Other)
  Sender: FDA-Public Use
  Company Number: US-BRISTOL-MYERS SQUIBB COMPANY-BMS-2020-004187

PATIENT

DRUGS (1)
  1. NIVOLUMAB [Suspect]
     Active Substance: NIVOLUMAB
     Indication: ACUTE MYELOID LEUKAEMIA
     Dosage: 1 MILLIGRAM/KILOGRAM, Q2WK
     Route: 042

REACTIONS (4)
  - Transaminases increased [Recovering/Resolving]
  - Thrombocytopenia [Recovering/Resolving]
  - Intentional product use issue [Unknown]
  - Encephalopathy [Recovering/Resolving]
